FAERS Safety Report 26155506 (Version 1)
Quarter: 2025Q4

REPORT INFORMATION
  Report Type: Spontaneous
  Country: JP (occurrence: JP)
  Receive Date: 20251215
  Receipt Date: 20251215
  Transmission Date: 20260117
  Serious: Yes (Other)
  Sender: DAIICHI
  Company Number: JP-DSJP-DS-2025-167658-JP

PATIENT
  Age: 6 Decade
  Sex: Female

DRUGS (1)
  1. ENHERTU [Suspect]
     Active Substance: FAM-TRASTUZUMAB DERUXTECAN-NXKI
     Indication: HER2 positive breast cancer
     Dosage: UNK
     Route: 041
     Dates: start: 20241029

REACTIONS (6)
  - Carcinoembryonic antigen increased [Unknown]
  - Skin discolouration [Unknown]
  - Alopecia [Unknown]
  - Oedema peripheral [Unknown]
  - Nail disorder [Recovering/Resolving]
  - Hangnail [Recovering/Resolving]

NARRATIVE: CASE EVENT DATE: 20250801
